FAERS Safety Report 5631568-5 (Version None)
Quarter: 2008Q1

REPORT INFORMATION
  Report Type: 
  Country: None (occurrence: None)
  Receive Date: 20080212
  Receipt Date: 20080129
  Transmission Date: 20080703
  Serious: Yes (Death, Hospitalization)
  Sender: FDA-Public Use
  Company Number: A-NJ2008-19371

PATIENT
  Age: 39 Year
  Sex: Female

DRUGS (1)
  1. TRACLEER [Suspect]
     Indication: PULMONARY HYPERTENSION
     Dosage: 62.5 MG, BID, ORAL
     Route: 048

REACTIONS (4)
  - CONDITION AGGRAVATED [None]
  - DISEASE PROGRESSION [None]
  - PULMONARY HYPERTENSION [None]
  - SARCOIDOSIS [None]
